FAERS Safety Report 11474683 (Version 1)
Quarter: 2015Q3

REPORT INFORMATION
  Report Type: Spontaneous
  Country: IN (occurrence: None)
  Receive Date: 20150908
  Receipt Date: 20150908
  Transmission Date: 20151125
  Serious: No
  Sender: FDA-Public Use
  Company Number: None

PATIENT
  Age: 36 Year
  Sex: Female
  Weight: 61.24 kg

DRUGS (2)
  1. ROCEPHIN [Suspect]
     Active Substance: CEFTRIAXONE SODIUM
     Indication: PHARYNGITIS
     Dosage: GIVEN INTO/UNDER THE SKIN
  2. ROCEPHIN [Suspect]
     Active Substance: CEFTRIAXONE SODIUM
     Indication: ACUTE SINUSITIS
     Dosage: GIVEN INTO/UNDER THE SKIN

REACTIONS (1)
  - Hypoaesthesia [None]

NARRATIVE: CASE EVENT DATE: 20150905
